FAERS Safety Report 5977158-6 (Version None)
Quarter: 2008Q4

REPORT INFORMATION
  Report Type: 
  Country: None (occurrence: None)
  Receive Date: 20081201
  Receipt Date: 20081201
  Transmission Date: 20090506
  Serious: Yes (Hospitalization)
  Sender: FDA-Public Use
  Company Number: None

PATIENT
  Sex: Male
  Weight: 64 kg

DRUGS (1)
  1. CISPLATIN [Suspect]
     Dosage: 176 MG
     Dates: end: 20071023

REACTIONS (8)
  - CHILLS [None]
  - CYTOMEGALOVIRUS OESOPHAGITIS [None]
  - HERPES SIMPLEX [None]
  - HYPERHIDROSIS [None]
  - NEUTROPHIL COUNT INCREASED [None]
  - OESOPHAGITIS [None]
  - PYREXIA [None]
  - RENAL FAILURE [None]
